FAERS Safety Report 24906542 (Version 1)
Quarter: 2025Q1

REPORT INFORMATION
  Report Type: Spontaneous
  Country: GB (occurrence: GB)
  Receive Date: 20250130
  Receipt Date: 20250130
  Transmission Date: 20250409
  Serious: Yes (Life-Threatening, Other)
  Sender: ELI LILLY AND COMPANY
  Company Number: None

PATIENT
  Age: 45 Year
  Sex: Male
  Weight: 105 kg

DRUGS (4)
  1. MOUNJARO [Suspect]
     Active Substance: TIRZEPATIDE
     Indication: Weight control
     Dosage: 15 MG, WEEKLY (1/W)
     Route: 065
     Dates: start: 20240701, end: 20250117
  2. FLECAINIDE [Concomitant]
     Active Substance: FLECAINIDE
     Indication: Atrial fibrillation
     Dates: start: 20120801
  3. ATORVASTATIN [Concomitant]
     Active Substance: ATORVASTATIN
     Indication: Product used for unknown indication
     Dates: start: 20240104
  4. OMEPRAZOLE [Concomitant]
     Active Substance: OMEPRAZOLE
     Indication: Dyspepsia
     Dates: start: 20240601

REACTIONS (3)
  - Depression [Recovered/Resolved]
  - Suicidal ideation [Unknown]
  - Product dose omission issue [Unknown]

NARRATIVE: CASE EVENT DATE: 20241201
